FAERS Safety Report 6086043-3 (Version None)
Quarter: 2009Q1

REPORT INFORMATION
  Report Type: 
  Country: None (occurrence: None)
  Receive Date: 20090220
  Receipt Date: 20090210
  Transmission Date: 20090719
  Serious: Yes (Death, Other)
  Sender: FDA-Public Use
  Company Number: PR-BAXTER-2009BH002319

PATIENT
  Age: 82 Year
  Sex: Female

DRUGS (10)
  1. HEPARIN SODIUM INJECTION [Suspect]
     Indication: THROMBOSIS PROPHYLAXIS
     Route: 065
     Dates: start: 20070212
  2. ISMO [Concomitant]
     Indication: DRUG USE FOR UNKNOWN INDICATION
     Route: 048
  3. LASIX [Concomitant]
     Indication: DRUG USE FOR UNKNOWN INDICATION
     Route: 048
  4. COREG [Concomitant]
     Indication: DRUG USE FOR UNKNOWN INDICATION
     Route: 048
  5. ASPIRIN [Concomitant]
     Indication: DRUG USE FOR UNKNOWN INDICATION
     Route: 048
  6. PLAVIX [Concomitant]
     Indication: DRUG USE FOR UNKNOWN INDICATION
     Route: 048
  7. METOPROLOL TARTRATE [Concomitant]
     Indication: DRUG USE FOR UNKNOWN INDICATION
     Route: 048
  8. ANTIBIOTICS [Concomitant]
     Indication: DRUG USE FOR UNKNOWN INDICATION
     Route: 065
  9. IRON [Concomitant]
     Indication: DRUG USE FOR UNKNOWN INDICATION
     Route: 065
  10. ERYTHROPOIESIS STIMULATING AGENTS [Concomitant]
     Indication: DRUG USE FOR UNKNOWN INDICATION
     Route: 065

REACTIONS (19)
  - ANAEMIA [None]
  - ANGIOEDEMA [None]
  - CARDIAC FAILURE CONGESTIVE [None]
  - CARDIO-RESPIRATORY ARREST [None]
  - CEREBROVASCULAR ACCIDENT [None]
  - CHEST PAIN [None]
  - DISTURBANCE IN ATTENTION [None]
  - DRUG HYPERSENSITIVITY [None]
  - DYSPHAGIA [None]
  - DYSURIA [None]
  - HYPERHIDROSIS [None]
  - HYPOTENSION [None]
  - INSOMNIA [None]
  - LETHARGY [None]
  - NAUSEA [None]
  - THROMBOCYTOPENIA [None]
  - URTICARIA [None]
  - VISION BLURRED [None]
  - WEIGHT INCREASED [None]
